FAERS Safety Report 5866607-X (Version None)
Quarter: 2008Q3

REPORT INFORMATION
  Report Type: 
  Country: None (occurrence: None)
  Receive Date: 20080902
  Receipt Date: 20080825
  Transmission Date: 20090109
  Serious: Yes (Hospitalization)
  Sender: FDA-Public Use
  Company Number: US-JNJFOC-20080703692

PATIENT
  Sex: Male
  Weight: 81.65 kg

DRUGS (3)
  1. INFLIXIMAB [Suspect]
     Indication: CROHN'S DISEASE
     Dosage: 3 INFUSIONS PRIOR TO BASELINE
     Route: 042
  2. MERCAPTOPURINE [Concomitant]
  3. ANTIBIOTICS [Concomitant]

REACTIONS (1)
  - GASTROENTERITIS VIRAL [None]
